FAERS Safety Report 23185196 (Version 1)
Quarter: 2023Q4

REPORT INFORMATION
  Report Type: Spontaneous
  Country: CA (occurrence: CA)
  Receive Date: 20231115
  Receipt Date: 20231115
  Transmission Date: 20240110
  Serious: Yes (Congenital Anomaly, Other)
  Sender: FDA-Public Use
  Company Number: CA-SANDOZ-SDZ2023CA053048

PATIENT
  Age: 28 Month
  Sex: Female

DRUGS (1)
  1. LEVETIRACETAM [Suspect]
     Active Substance: LEVETIRACETAM
     Indication: Epilepsy
     Dosage: UNK
     Route: 064

REACTIONS (4)
  - Congenital neurological disorder [Recovering/Resolving]
  - Cranial nerve disorder [Recovering/Resolving]
  - Developmental delay [Recovering/Resolving]
  - Foetal exposure during pregnancy [Recovering/Resolving]
